FAERS Safety Report 9972901 (Version 1)
Quarter: 2014Q1

REPORT INFORMATION
  Report Type: Spontaneous
  Country: US (occurrence: US)
  Receive Date: 20140306
  Receipt Date: 20140306
  Transmission Date: 20141002
  Serious: Yes (Other)
  Sender: FDA-Public Use
  Company Number: US-PFIZER INC-2014062000

PATIENT
  Age: 66 Year
  Sex: Female

DRUGS (1)
  1. SUTENT [Suspect]
     Indication: NEUROENDOCRINE CARCINOMA OF THE SKIN
     Dosage: 50 MG, CYCLIC ( TAKE 1 DAILY 4 WKS ON, 2 WKS OFF)
     Route: 048
     Dates: start: 20140123

REACTIONS (2)
  - Oral pain [Unknown]
  - Off label use [Unknown]
